FAERS Safety Report 4349979-7 (Version None)
Quarter: 2004Q2

REPORT INFORMATION
  Report Type: 
  Country: None (occurrence: None)
  Receive Date: 20040428
  Receipt Date: 20040428
  Transmission Date: 20050107
  Serious: No
  Sender: FDA-Public Use
  Company Number: None

PATIENT
  Age: 40 Year
  Sex: Male

DRUGS (8)
  1. GENTAMICIN [Suspect]
     Indication: PERIRECTAL ABSCESS
     Dosage: 525MG Q24 INTRAVENOUS
     Route: 042
     Dates: start: 20040224, end: 20040310
  2. GENTAMICIN [Suspect]
     Indication: PSEUDOMONAS INFECTION
     Dosage: 525MG Q24 INTRAVENOUS
     Route: 042
     Dates: start: 20040224, end: 20040310
  3. FLUCONAZOLE [Concomitant]
  4. DAPSONE [Concomitant]
  5. AZITHROMYCIN [Concomitant]
  6. SUSTIVA [Concomitant]
  7. KALETRA [Concomitant]
  8. ZOSYN [Concomitant]

REACTIONS (1)
  - BLOOD CREATININE INCREASED [None]
